FAERS Safety Report 4843571-3 (Version None)
Quarter: 2005Q4

REPORT INFORMATION
  Report Type: 
  Country: None (occurrence: None)
  Receive Date: 20051202
  Receipt Date: 20051108
  Transmission Date: 20060501
  Serious: Yes (Hospitalization)
  Sender: FDA-Public Use
  Company Number: JP-ABBOTT-05P-087-0316835-00

PATIENT
  Sex: Female
  Weight: 57 kg

DRUGS (3)
  1. CEFZON [Suspect]
     Indication: CELLULITIS
     Route: 048
     Dates: start: 20051024, end: 20051026
  2. LOXOPROFEN SODIUM [Suspect]
     Indication: CELLULITIS
     Route: 048
     Dates: start: 20051024, end: 20051026
  3. TEPRENONE [Suspect]
     Indication: DRUG USE FOR UNKNOWN INDICATION
     Route: 048
     Dates: start: 20051024, end: 20051026

REACTIONS (6)
  - ALANINE AMINOTRANSFERASE INCREASED [None]
  - ASPARTATE AMINOTRANSFERASE INCREASED [None]
  - DRUG ERUPTION [None]
  - HEPATIC FUNCTION ABNORMAL [None]
  - PRURITUS GENERALISED [None]
  - WHITE BLOOD CELL COUNT INCREASED [None]
